FAERS Safety Report 18254753 (Version 2)
Quarter: 2021Q1

REPORT INFORMATION
  Report Type: Spontaneous
  Country: US (occurrence: US)
  Receive Date: 20200910
  Receipt Date: 20210310
  Transmission Date: 20210419
  Serious: Yes (Hospitalization, Other)
  Sender: FDA-Public Use
  Company Number: US-PURDUE-USA-2020-0165491

PATIENT
  Sex: Female

DRUGS (2)
  1. RISPERIDONE. [Concomitant]
     Active Substance: RISPERIDONE
     Indication: PRODUCT USED FOR UNKNOWN INDICATION
     Dosage: UNK
     Route: 065
  2. OXYCODONE/ ACETAMINOPHEN TABLETS [Suspect]
     Active Substance: ACETAMINOPHEN\OXYCODONE HYDROCHLORIDE
     Indication: SURGERY
     Dosage: UNK
     Route: 048

REACTIONS (13)
  - Diarrhoea [Unknown]
  - Lymphoedema [Unknown]
  - Decreased appetite [Unknown]
  - Dizziness [Unknown]
  - Hospitalisation [Unknown]
  - Psychological trauma [Unknown]
  - Weight decreased [Unknown]
  - Insomnia [Unknown]
  - Vomiting [Unknown]
  - Drug dependence [Unknown]
  - Peripheral swelling [Unknown]
  - Nightmare [Unknown]
  - Abdominal pain upper [Unknown]
